FAERS Safety Report 12140562 (Version 7)
Quarter: 2016Q2

REPORT INFORMATION
  Report Type: Spontaneous
  Country: US (occurrence: US)
  Receive Date: 20160303
  Receipt Date: 20160502
  Transmission Date: 20160815
  Serious: Yes (Death, Hospitalization, Other)
  Sender: FDA-Public Use
  Company Number: US-GLAXOSMITHKLINE-US2016GSK030516

PATIENT
  Age: 66 Year
  Sex: Female

DRUGS (6)
  1. FLOLAN [Suspect]
     Active Substance: EPOPROSTENOL SODIUM
     Indication: PULMONARY ARTERIAL HYPERTENSION
     Dosage: 20 NG/KG/MIN, CONTINUOUSLY
     Dates: start: 20160219
  2. SILDENAFIL. [Concomitant]
     Active Substance: SILDENAFIL
  3. FLOLAN [Suspect]
     Active Substance: EPOPROSTENOL SODIUM
     Dosage: 29 NG/KG/MIN, CONTINUOUSLY
     Dates: start: 20160219
  4. FLOLAN [Suspect]
     Active Substance: EPOPROSTENOL SODIUM
     Dosage: 29 NG/KG/MIN, CONTINUOUSLY
     Dates: start: 20160210
  5. AMLODIPINE [Concomitant]
     Active Substance: AMLODIPINE BESYLATE
  6. FLOLAN [Suspect]
     Active Substance: EPOPROSTENOL SODIUM
     Dosage: 21 NG/KG/MIN, CONTINUOUSLY
     Dates: start: 20160219

REACTIONS (8)
  - Death [Fatal]
  - Hospice care [Fatal]
  - Fluid retention [Unknown]
  - Oedema [Unknown]
  - Nausea [Unknown]
  - Dyspnoea [Unknown]
  - Haematemesis [Unknown]
  - Hospitalisation [Unknown]

NARRATIVE: CASE EVENT DATE: 201603
